FAERS Safety Report 5275537-6 (Version None)
Quarter: 2007Q1

REPORT INFORMATION
  Report Type: 
  Country: None (occurrence: None)
  Receive Date: 20061213
  Receipt Date: 20051013
  Transmission Date: 20070707
  Serious: Yes (Hospitalization)
  Sender: FDA-Public Use
  Company Number: 2005UW15455

PATIENT
  Age: 50 Year
  Sex: Female

DRUGS (4)
  1. SEROQUEL [Suspect]
     Dosage: 900 MG DAILY PO
     Route: 048
  2. WELLBUTRIN [Concomitant]
  3. EFFEXOR [Concomitant]
  4. RESTORIL [Concomitant]

REACTIONS (1)
  - PANCREATITIS [None]
